FAERS Safety Report 5845546-4 (Version None)
Quarter: 2008Q3

REPORT INFORMATION
  Report Type: 
  Country: None (occurrence: None)
  Receive Date: 20080814
  Receipt Date: 20080811
  Transmission Date: 20090109
  Serious: Yes (Other)
  Sender: FDA-Public Use
  Company Number: CN-ASTRAZENECA-2008AP05666

PATIENT
  Age: 31 Year
  Sex: Female

DRUGS (1)
  1. ROPIVACAINE [Suspect]
     Indication: ANAESTHESIA
     Route: 037

REACTIONS (2)
  - ANAPHYLACTIC REACTION [None]
  - DELAYED RECOVERY FROM ANAESTHESIA [None]
